FAERS Safety Report 14899038 (Version 4)
Quarter: 2018Q2

REPORT INFORMATION
  Report Type: Report from Study
  Country: None (occurrence: US)
  Receive Date: 20180516
  Receipt Date: 20180618
  Transmission Date: 20180711
  Serious: Yes (Hospitalization, Other)
  Sender: FDA-Public Use
  Company Number: US-ABBVIE-18K-163-2332609-00

PATIENT
  Age: 56 Year
  Sex: Female

DRUGS (5)
  1. HUMIRA [Suspect]
     Active Substance: ADALIMUMAB
     Route: 058
     Dates: start: 20180515
  2. TRAMADOL. [Concomitant]
     Active Substance: TRAMADOL
     Indication: ARTHRALGIA
  3. ISONIAZID. [Suspect]
     Active Substance: ISONIAZID
     Indication: TUBERCULOSIS
     Route: 065
  4. HUMIRA [Suspect]
     Active Substance: ADALIMUMAB
     Indication: RHEUMATOID ARTHRITIS
     Route: 058
     Dates: start: 2002, end: 201803
  5. MELOXICAM. [Concomitant]
     Active Substance: MELOXICAM
     Indication: INFLAMMATION

REACTIONS (15)
  - Arthralgia [Recovered/Resolved]
  - Ligament sprain [Unknown]
  - Injection site pain [Recovering/Resolving]
  - Joint dislocation [Recovering/Resolving]
  - Osteoarthritis [Recovered/Resolved]
  - Muscle strain [Not Recovered/Not Resolved]
  - Gait inability [Recovered/Resolved]
  - Arthritis [Not Recovered/Not Resolved]
  - Rheumatoid arthritis [Recovered/Resolved]
  - Cartilage injury [Recovered/Resolved]
  - Tuberculosis [Recovered/Resolved]
  - Rheumatoid arthritis [Recovering/Resolving]
  - Hepatic enzyme increased [Recovering/Resolving]
  - Impaired self-care [Recovered/Resolved]
  - Dysstasia [Recovered/Resolved]

NARRATIVE: CASE EVENT DATE: 20130122
